FAERS Safety Report 8319957-1 (Version None)
Quarter: 2012Q2

REPORT INFORMATION
  Report Type: 
  Country: None (occurrence: None)
  Receive Date: 20120427
  Receipt Date: 20120414
  Transmission Date: 20120825
  Serious: Yes (Death, Hospitalization, Other)
  Sender: FDA-Public Use
  Company Number: PT-ROCHE-1060044

PATIENT
  Age: 79 Year
  Sex: Female

DRUGS (13)
  1. DOXORUBICIN HCL [Suspect]
     Indication: NON-HODGKIN'S LYMPHOMA
  2. ACARBOSE [Concomitant]
  3. CYCLOPHOSPHAMIDE [Suspect]
     Indication: NON-HODGKIN'S LYMPHOMA
  4. ALLOPURINOL [Concomitant]
  5. VINCRISTINE [Suspect]
     Indication: NON-HODGKIN'S LYMPHOMA
  6. METHOTREXATE [Suspect]
     Indication: NON-HODGKIN'S LYMPHOMA
  7. OMEPRAZOLE [Concomitant]
  8. DEXAMETHASONE [Suspect]
     Indication: NON-HODGKIN'S LYMPHOMA
  9. RITUXIMAB [Suspect]
     Indication: NON-HODGKIN'S LYMPHOMA
  10. BLEOMYCIN SULFATE [Suspect]
     Indication: NON-HODGKIN'S LYMPHOMA
  11. PREDNISOLONE [Suspect]
     Indication: NON-HODGKIN'S LYMPHOMA
  12. BETAHISTINE [Concomitant]
  13. TRIMETAZIDINE [Concomitant]

REACTIONS (9)
  - UROSEPSIS [None]
  - RESPIRATORY FAILURE [None]
  - NON-HODGKIN'S LYMPHOMA RECURRENT [None]
  - GENERAL PHYSICAL HEALTH DETERIORATION [None]
  - ENCEPHALOPATHY [None]
  - HEPATITIS B [None]
  - PNEUMONIA [None]
  - HYPERBILIRUBINAEMIA [None]
  - HEPATITIS ACUTE [None]
